FAERS Safety Report 8942013 (Version 1)
Quarter: 2012Q4

REPORT INFORMATION
  Report Type: 
  Country: US (occurrence: US)
  Receive Date: 20121203
  Receipt Date: 20121203
  Transmission Date: 20130627
  Serious: Yes (Hospitalization)
  Sender: FDA-Public Use
  Company Number: US-PFIZER INC-2012301615

PATIENT
  Age: 58 Year
  Sex: Male
  Weight: 79.37 kg

DRUGS (4)
  1. LYRICA [Suspect]
     Indication: NERVE DAMAGE
     Dosage: 100 mg, every 8 hour
  2. LYRICA [Suspect]
     Indication: PERIPHERAL NERVE INJURY
  3. ACETYLSALICYLIC ACID [Concomitant]
     Dosage: UNK, daily
  4. PERCOCET [Concomitant]
     Indication: PAIN
     Dosage: UNK, as needed

REACTIONS (4)
  - Myocardial infarction [Unknown]
  - Coronary artery occlusion [Unknown]
  - Hypotension [Unknown]
  - Dyspnoea [Unknown]
